FAERS Safety Report 4359002-6 (Version None)
Quarter: 2004Q2

REPORT INFORMATION
  Report Type: 
  Country: None (occurrence: None)
  Receive Date: 20040512
  Receipt Date: 20040209
  Transmission Date: 20050107
  Serious: Yes (Other)
  Sender: FDA-Public Use
  Company Number: BE-JNJFOC-20040202257

PATIENT
  Age: 59 Year
  Sex: Female

DRUGS (2)
  1. PROPULSID [Suspect]
     Indication: IMPAIRED GASTRIC EMPTYING
     Dosage: 10 MG, 4 IN 1 DAY,; 5 MG, 4 IN 1 DAY,
     Dates: end: 20040209
  2. PROPULSID [Suspect]
     Indication: IMPAIRED GASTRIC EMPTYING
     Dosage: 10 MG, 4 IN 1 DAY,; 5 MG, 4 IN 1 DAY,
     Dates: start: 20031124

REACTIONS (1)
  - ELECTROCARDIOGRAM QT PROLONGED [None]
